FAERS Safety Report 11146657 (Version 3)
Quarter: 2015Q3

REPORT INFORMATION
  Report Type: Spontaneous
  Country: JP (occurrence: JP)
  Receive Date: 20150528
  Receipt Date: 20150722
  Transmission Date: 20151125
  Serious: Yes (Death, Other)
  Sender: FDA-Public Use
  Company Number: JP-MALLINCKRODT-T201502756

PATIENT
  Age: 54 Year
  Sex: Male

DRUGS (18)
  1. LANSOPRAZOLE. [Concomitant]
     Active Substance: LANSOPRAZOLE
     Dosage: 15 MG
     Route: 048
     Dates: end: 20150629
  2. ZYPREXA [Concomitant]
     Active Substance: OLANZAPINE
     Dosage: 35 MG
     Route: 048
     Dates: end: 20150629
  3. SERENACE [Concomitant]
     Active Substance: HALOPERIDOL
     Dosage: 2 MG
     Route: 048
     Dates: end: 20150629
  4. OXINORM [Concomitant]
     Active Substance: OXYCODONE HYDROCHLORIDE
     Dosage: 10-20 MG, PRN
     Route: 048
     Dates: start: 20150426
  5. PURSENNID [Concomitant]
     Active Substance: SENNOSIDES A AND B
     Dosage: 60 MG
     Route: 048
     Dates: end: 20150629
  6. FLUNITRAZEPAM [Concomitant]
     Active Substance: FLUNITRAZEPAM
     Dosage: 2 MG
     Route: 048
     Dates: start: 20150507, end: 20150629
  7. PRIMPERAN [Concomitant]
     Active Substance: METOCLOPRAMIDE HYDROCHLORIDE
     Dosage: 15 MG
     Route: 048
     Dates: end: 20150629
  8. METHADONE [Suspect]
     Active Substance: METHADONE HYDROCHLORIDE
     Dosage: 10 MG (30 MG DAILY DOSE)
     Route: 048
     Dates: start: 20150601, end: 20150627
  9. METHADONE [Suspect]
     Active Substance: METHADONE HYDROCHLORIDE
     Indication: CANCER PAIN
     Dosage: 10 MG (30 MG DAILY DOSE)
     Route: 048
     Dates: start: 20150427, end: 20150503
  10. MAGMITT [Concomitant]
     Active Substance: MAGNESIUM OXIDE
     Dosage: 1980 MG
     Route: 048
     Dates: end: 20150629
  11. LOXOPROFEN SODIUM [Concomitant]
     Active Substance: LOXOPROFEN SODIUM
     Dosage: 180 MG
     Route: 048
     Dates: end: 20150629
  12. NITRAZEPAM [Concomitant]
     Active Substance: NITRAZEPAM
     Dosage: 5 MG
     Route: 048
     Dates: end: 20150629
  13. BENZALIN [Concomitant]
     Active Substance: NITRAZEPAM
     Dosage: 5 MG
     Route: 048
     Dates: start: 20150508, end: 20150629
  14. METHADONE [Suspect]
     Active Substance: METHADONE HYDROCHLORIDE
     Dosage: 10 MG (20 MG DAILY DOSE)
     Route: 048
     Dates: start: 20150504, end: 20150531
  15. LASIX [Concomitant]
     Active Substance: FUROSEMIDE
     Dosage: 20 MG
     Route: 048
     Dates: end: 20150629
  16. FERROUS CITRATE [Concomitant]
     Active Substance: FERROUS CITRATE
     Dosage: 100 MG
     Route: 048
     Dates: end: 20150629
  17. LONASEN [Concomitant]
     Active Substance: BLONANSERIN
     Dosage: 24 MG
     Route: 048
     Dates: end: 20150430
  18. LEXOTAN [Concomitant]
     Active Substance: BROMAZEPAM
     Dosage: 5 MG
     Route: 048
     Dates: start: 20150430, end: 20150509

REACTIONS (3)
  - Colon cancer [Fatal]
  - Schizophrenia [Recovered/Resolved]
  - Somnolence [Recovering/Resolving]

NARRATIVE: CASE EVENT DATE: 20150430
